FAERS Safety Report 18014898 (Version 2)
Quarter: 2020Q3

REPORT INFORMATION
  Report Type: Report from Study
  Country: BW (occurrence: BW)
  Receive Date: 20200713
  Receipt Date: 20200723
  Transmission Date: 20201103
  Serious: Yes (Congenital Anomaly, Other)
  Sender: FDA-Public Use
  Company Number: BW-VIIV HEALTHCARE LIMITED-BW2020GSK127246

PATIENT

DRUGS (1)
  1. DOLUTEGRAVIR [Suspect]
     Active Substance: DOLUTEGRAVIR
     Indication: HIV INFECTION
     Dosage: UNK
     Route: 064
     Dates: start: 20160624

REACTIONS (2)
  - Foetal exposure during pregnancy [Unknown]
  - Encephalocele [Unknown]
